FAERS Safety Report 5302589-7 (Version None)
Quarter: 2007Q2

REPORT INFORMATION
  Report Type: 
  Country: None (occurrence: None)
  Receive Date: 20070419
  Receipt Date: 20070417
  Transmission Date: 20071010
  Serious: Yes (Hospitalization)
  Sender: FDA-Public Use
  Company Number: US-BOEHRINGER INGELHEIM PHARMACEUTICALS, INC.-2007-BP-02121BP

PATIENT
  Sex: Male
  Weight: 61 kg

DRUGS (6)
  1. TIOTROPIUM INH. POWDER (BLIND) [Suspect]
     Indication: CHRONIC OBSTRUCTIVE PULMONARY DISEASE
     Route: 055
     Dates: start: 20030826
  2. PLACEBO INH. POWDER (BLIND) [Suspect]
     Indication: CHRONIC OBSTRUCTIVE PULMONARY DISEASE
     Route: 055
     Dates: start: 20030826
  3. PILOCARPINE HYDROCHLORIDE [Suspect]
     Indication: GLAUCOMA
     Dates: start: 19980615
  4. LEVOBUNOLOL HCL [Suspect]
     Indication: GLAUCOMA
     Dates: start: 19980615
  5. ALPHAGAN [Suspect]
     Indication: GLAUCOMA
     Dates: start: 19980615
  6. PREDNISONE TAB [Suspect]
     Indication: ANOREXIA
     Route: 048
     Dates: start: 20060801

REACTIONS (2)
  - DIZZINESS [None]
  - ORTHOSTATIC HYPOTENSION [None]
